FAERS Safety Report 9597015 (Version 2)
Quarter: 2013Q4

REPORT INFORMATION
  Report Type: Report from Study
  Country: FR (occurrence: FR)
  Receive Date: 20131004
  Receipt Date: 20131007
  Transmission Date: 20140711
  Serious: Yes (Other)
  Sender: FDA-Public Use
  Company Number: FR-PFIZER INC-2013283435

PATIENT
  Age: 77 Year
  Sex: Female

DRUGS (2)
  1. ADRIAMYCIN [Suspect]
     Indication: CHEMOTHERAPY
     Dosage: 50 MG/M2, DAILY
     Route: 042
     Dates: start: 20110215, end: 20110522
  2. STREPTOZOCIN [Suspect]
     Indication: CHEMOTHERAPY
     Dosage: 500 MG/M2, DAILY
     Route: 042
     Dates: start: 20110215, end: 20110522

REACTIONS (1)
  - Renal failure [Not Recovered/Not Resolved]
